FAERS Safety Report 17533980 (Version 1)
Quarter: 2020Q1

REPORT INFORMATION
  Report Type: Spontaneous
  Country: GB (occurrence: GB)
  Receive Date: 20200312
  Receipt Date: 20200312
  Transmission Date: 20200409
  Serious: Yes (Hospitalization, Other)
  Sender: FDA-Public Use
  Company Number: GB-BRISTOL-MYERS SQUIBB COMPANY-BMS-2020-019152

PATIENT
  Age: 58 Year
  Sex: Male
  Weight: 125 kg

DRUGS (2)
  1. NIVOLUMAB [Suspect]
     Active Substance: NIVOLUMAB
     Indication: MALIGNANT MELANOMA
     Dosage: CYCLE 1 - SINGLE DOSE RECEIVED
     Route: 042
     Dates: start: 20200106
  2. IPILIMUMAB [Suspect]
     Active Substance: IPILIMUMAB
     Indication: MALIGNANT MELANOMA
     Dosage: CYCLE 1 - SINGLE DOSE GIVEN
     Route: 047
     Dates: start: 20200106

REACTIONS (5)
  - Immune-mediated enterocolitis [Not Recovered/Not Resolved]
  - C-reactive protein increased [Unknown]
  - Diarrhoea haemorrhagic [Unknown]
  - Intentional product use issue [Unknown]
  - Prescribed overdose [Unknown]

NARRATIVE: CASE EVENT DATE: 20200128
